FAERS Safety Report 6159665-9 (Version None)
Quarter: 2009Q2

REPORT INFORMATION
  Report Type: 
  Country: None (occurrence: None)
  Receive Date: 20090415
  Receipt Date: 20090401
  Transmission Date: 20091009
  Serious: Yes (Other)
  Sender: FDA-Public Use
  Company Number: DE-1169144

PATIENT
  Sex: Female

DRUGS (3)
  1. CIPROFLOXACIN HYDROCHLORIDE [Suspect]
     Dosage: AURICULAR (OTIC)
     Route: 001
     Dates: start: 20090212
  2. CIPRO [Concomitant]
  3. OFLOXACIN (OFLOXACIN) [Concomitant]

REACTIONS (1)
  - HYPOACUSIS [None]
